FAERS Safety Report 6636699-9 (Version None)
Quarter: 2010Q1

REPORT INFORMATION
  Report Type: 
  Country: None (occurrence: None)
  Receive Date: 20100316
  Receipt Date: 20100308
  Transmission Date: 20100710
  Serious: Yes (Hospitalization)
  Sender: FDA-Public Use
  Company Number: B0635870A

PATIENT
  Sex: Female

DRUGS (8)
  1. VALTREX [Suspect]
     Indication: DRUG USE FOR UNKNOWN INDICATION
     Dosage: 3000MG PER DAY
     Route: 048
     Dates: start: 20100210, end: 20100218
  2. GASTER [Concomitant]
     Dosage: 40MG PER DAY
     Route: 048
     Dates: end: 20100218
  3. PLAVIX [Concomitant]
     Dosage: 75MG PER DAY
     Route: 048
     Dates: end: 20100218
  4. FRANDOL [Concomitant]
     Route: 062
  5. SIGMART [Concomitant]
     Dosage: 5MG PER DAY
     Route: 048
     Dates: end: 20100218
  6. ALLEGRA [Concomitant]
     Dosage: 120MG PER DAY
     Route: 048
     Dates: end: 20100218
  7. SELOKEN [Concomitant]
     Route: 048
     Dates: end: 20100218
  8. BLOPRESS [Concomitant]
     Route: 048
     Dates: end: 20100218

REACTIONS (4)
  - ALTERED STATE OF CONSCIOUSNESS [None]
  - BLOOD CREATININE INCREASED [None]
  - RENAL IMPAIRMENT [None]
  - SOMNOLENCE [None]
